FAERS Safety Report 5635491-1 (Version None)
Quarter: 2008Q1

REPORT INFORMATION
  Report Type: 
  Country: None (occurrence: None)
  Receive Date: 20080131
  Receipt Date: 20071201
  Transmission Date: 20080703
  Serious: No
  Sender: FDA-Public Use
  Company Number: US200712000337

PATIENT
  Age: 71 Year
  Sex: Female
  Weight: 97.5 kg

DRUGS (9)
  1. BYETTA [Suspect]
     Indication: TYPE 2 DIABETES MELLITUS
     Dosage: 5 UG, 2/D, SUBCUTANEOUS
     Route: 058
     Dates: start: 20071114
  2. AMARYL [Concomitant]
  3. LYRICA [Concomitant]
  4. CLONIDINE [Concomitant]
  5. COZAAR [Concomitant]
  6. CRESTOR [Concomitant]
  7. HYDROCHLORIDE (HYDROCHLORIDE) [Concomitant]
  8. SINGULAIR [Concomitant]
  9. FISH OIL (FISH OIL) [Concomitant]

REACTIONS (3)
  - BLOOD GLUCOSE FLUCTUATION [None]
  - BLOOD GLUCOSE INCREASED [None]
  - HYPOAESTHESIA [None]
